FAERS Safety Report 9411347 (Version 1)
Quarter: 2013Q3

REPORT INFORMATION
  Report Type: Spontaneous
  Country: US (occurrence: US)
  Receive Date: 20130722
  Receipt Date: 20130722
  Transmission Date: 20140515
  Serious: No
  Sender: FDA-Public Use
  Company Number: US-BIOGENIDEC-2013BI065785

PATIENT
  Age: 49 Year
  Sex: Female

DRUGS (1)
  1. TYSABRI [Suspect]
     Indication: CROHN^S DISEASE
     Route: 042
     Dates: start: 20130128, end: 20130424

REACTIONS (6)
  - Musculoskeletal disorder [Not Recovered/Not Resolved]
  - Balance disorder [Recovered/Resolved]
  - Coordination abnormal [Not Recovered/Not Resolved]
  - Fall [Recovered/Resolved]
  - Mobility decreased [Unknown]
  - Arthralgia [Not Recovered/Not Resolved]
